FAERS Safety Report 8949750 (Version 1)
Quarter: 2012Q4

REPORT INFORMATION
  Report Type: 
  Country: US (occurrence: US)
  Receive Date: 20121206
  Receipt Date: 20121206
  Transmission Date: 20130627
  Serious: Yes (Hospitalization)
  Sender: FDA-Public Use
  Company Number: US-ROCHE-1163715

PATIENT
  Sex: Male

DRUGS (7)
  1. PEGASYS [Suspect]
     Indication: HEPATITIS C
     Route: 065
     Dates: start: 2009
  2. PEGASYS [Suspect]
     Route: 065
     Dates: start: 2010, end: 2011
  3. PEGASYS [Suspect]
     Route: 065
     Dates: start: 201207
  4. RIBAVIRIN [Suspect]
     Indication: HEPATITIS C
     Route: 065
     Dates: start: 2009
  5. RIBAVIRIN [Suspect]
     Route: 065
     Dates: start: 2010, end: 2011
  6. RIBAVIRIN [Suspect]
     Route: 065
     Dates: start: 201207
  7. TELAPREVIR [Suspect]
     Indication: HEPATITIS C
     Route: 065
     Dates: start: 201207

REACTIONS (5)
  - Renal failure [Unknown]
  - Fatigue [Unknown]
  - Decreased appetite [Unknown]
  - Nausea [Unknown]
  - Dizziness [Unknown]
